FAERS Safety Report 22129802 (Version 1)
Quarter: 2023Q1

REPORT INFORMATION
  Report Type: Report from Study
  Country: ES (occurrence: ES)
  Receive Date: 20230323
  Receipt Date: 20230323
  Transmission Date: 20230418
  Serious: Yes (Hospitalization)
  Sender: FDA-Public Use
  Company Number: ES-ELI_LILLY_AND_COMPANY-ES202302011368

PATIENT
  Sex: Male

DRUGS (3)
  1. TERIPARATIDE [Suspect]
     Active Substance: TERIPARATIDE
     Indication: Spinal fracture
     Dosage: 20 UG, DAILY
     Route: 058
     Dates: start: 20220201
  2. TERIPARATIDE [Suspect]
     Active Substance: TERIPARATIDE
     Indication: Osteoporosis
  3. ELIQUIS [Concomitant]
     Active Substance: APIXABAN
     Indication: Arrhythmia
     Dosage: UNK

REACTIONS (7)
  - Oedema peripheral [Unknown]
  - Gait disturbance [Unknown]
  - Cardiac disorder [Unknown]
  - Renal disorder [Unknown]
  - Hepatic cirrhosis [Unknown]
  - Peripheral swelling [Unknown]
  - Fatigue [Unknown]

NARRATIVE: CASE EVENT DATE: 20220101
